FAERS Safety Report 6233167-3 (Version None)
Quarter: 2009Q2

REPORT INFORMATION
  Report Type: 
  Country: None (occurrence: None)
  Receive Date: 20090612
  Receipt Date: 20090612
  Transmission Date: 20091009
  Serious: Yes (Other)
  Sender: FDA-Public Use
  Company Number: None

PATIENT
  Age: 79 Year
  Sex: Female
  Weight: 56.6996 kg

DRUGS (2)
  1. DEPAKOTE [Suspect]
     Indication: EPILEPSY
     Dosage: 500 MG 2 PER DAY
     Dates: start: 20081215, end: 20090315
  2. DEPAKOTE [Suspect]
     Indication: VERTIGO
     Dosage: 500 MG 2 PER DAY
     Dates: start: 20081215, end: 20090315

REACTIONS (5)
  - ALOPECIA [None]
  - CONFUSIONAL STATE [None]
  - EXPRESSIVE LANGUAGE DISORDER [None]
  - TREMOR [None]
  - WEIGHT DECREASED [None]
